FAERS Safety Report 19610758 (Version 2)
Quarter: 2021Q3

REPORT INFORMATION
  Report Type: Spontaneous
  Country: US (occurrence: US)
  Receive Date: 20210726
  Receipt Date: 20210917
  Transmission Date: 20211014
  Serious: Yes (Other)
  Sender: FDA-Public Use
  Company Number: US-ABBVIE-21K-163-4006654-00

PATIENT
  Sex: Female

DRUGS (2)
  1. CREON [Suspect]
     Active Substance: PANCRELIPASE AMYLASE\PANCRELIPASE LIPASE\PANCRELIPASE PROTEASE
     Indication: PANCREATICODUODENECTOMY
  2. CREON [Suspect]
     Active Substance: PANCRELIPASE AMYLASE\PANCRELIPASE LIPASE\PANCRELIPASE PROTEASE
     Indication: PANCREATECTOMY
     Route: 048

REACTIONS (8)
  - Anaemia [Unknown]
  - Type 1 diabetes mellitus [Unknown]
  - Abdominal pain [Unknown]
  - Brain neoplasm malignant [Unknown]
  - Ovarian cancer stage IV [Unknown]
  - Malnutrition [Unknown]
  - Malabsorption [Unknown]
  - Hypothyroidism [Unknown]
